FAERS Safety Report 7141104-2 (Version None)
Quarter: 2010Q4

REPORT INFORMATION
  Report Type: 
  Country: None (occurrence: None)
  Receive Date: 20101202
  Receipt Date: 20101202
  Transmission Date: 20110411
  Serious: Yes (Hospitalization)
  Sender: FDA-Public Use
  Company Number: None

PATIENT
  Sex: Female
  Weight: 84 kg

DRUGS (1)
  1. AZATHIOPRINE [Suspect]
     Indication: COLITIS
     Dosage: AZATHIOPRINE 50MG PO
     Route: 048
     Dates: start: 20101108, end: 20101120

REACTIONS (4)
  - ERYTHEMA [None]
  - RASH MACULO-PAPULAR [None]
  - SKIN WARM [None]
  - TENDERNESS [None]
